FAERS Safety Report 25769196 (Version 1)
Quarter: 2025Q3

REPORT INFORMATION
  Report Type: Spontaneous
  Country: US (occurrence: US)
  Receive Date: 20250905
  Receipt Date: 20250905
  Transmission Date: 20251021
  Serious: Yes (Hospitalization)
  Sender: ANI
  Company Number: US-ANIPHARMA-2025-US-040143

PATIENT
  Age: 80 Year
  Sex: Female
  Weight: 48.99 kg

DRUGS (4)
  1. CORTICOTROPIN [Suspect]
     Active Substance: CORTICOTROPIN
     Indication: Nephrotic syndrome
     Route: 058
     Dates: start: 202506
  2. CARVEDILOL [Concomitant]
     Active Substance: CARVEDILOL
  3. VALSARTAN [Concomitant]
     Active Substance: VALSARTAN
  4. CYCLOPHOSPHAMIDE [Concomitant]
     Active Substance: CYCLOPHOSPHAMIDE

REACTIONS (6)
  - Pneumothorax [Unknown]
  - Contraindicated product administered [Not Recovered/Not Resolved]
  - Hypoxia [Unknown]
  - Acute respiratory failure [Unknown]
  - Product dose omission issue [Unknown]
  - Surgery [Unknown]

NARRATIVE: CASE EVENT DATE: 20250717
